FAERS Safety Report 9580020 (Version 2)
Quarter: 2014Q1

REPORT INFORMATION
  Report Type: Report from Study
  Country: JP (occurrence: JP)
  Receive Date: 20131002
  Receipt Date: 20140128
  Transmission Date: 20141002
  Serious: Yes (Death)
  Sender: FDA-Public Use
  Company Number: JP-ROCHE-1280902

PATIENT
  Age: 63 Year
  Sex: Male
  Weight: 47 kg

DRUGS (14)
  1. METHOXY POLYETHYLENE GLYCOL-EPOETIN BETA [Suspect]
     Indication: NEPHROGENIC ANAEMIA
     Route: 042
     Dates: start: 20120813, end: 20121112
  2. METHOXY POLYETHYLENE GLYCOL-EPOETIN BETA [Suspect]
     Indication: NEPHROGENIC ANAEMIA
     Route: 042
     Dates: start: 20121210, end: 20121210
  3. METHOXY POLYETHYLENE GLYCOL-EPOETIN BETA [Suspect]
     Indication: NEPHROGENIC ANAEMIA
     Route: 042
     Dates: start: 20130115, end: 20130212
  4. BAYASPIRIN [Concomitant]
     Route: 048
     Dates: end: 20130219
  5. TAKEPRON [Concomitant]
     Route: 048
     Dates: end: 20130219
  6. KAYEXALATE [Concomitant]
     Indication: DIABETIC NEPHROPATHY
     Route: 048
     Dates: end: 20130219
  7. DIOVAN [Concomitant]
     Route: 048
     Dates: end: 20130219
  8. MYSLEE [Concomitant]
     Route: 048
     Dates: end: 20130219
  9. ADALAT CR [Concomitant]
     Route: 048
     Dates: end: 20130219
  10. NORVASC [Concomitant]
     Route: 048
     Dates: end: 20130219
  11. FOSRENOL [Concomitant]
     Indication: DIABETIC NEPHROPATHY
     Route: 048
     Dates: end: 20130219
  12. PRECIPITATED CALCIUM CARBONATE [Concomitant]
     Indication: DIABETIC NEPHROPATHY
     Route: 048
     Dates: end: 20130219
  13. APIDRA [Concomitant]
     Indication: DIABETIC NEPHROPATHY
     Route: 058
     Dates: end: 20130219
  14. LANTUS [Concomitant]
     Indication: DIABETIC NEPHROPATHY
     Route: 058
     Dates: end: 20130219

REACTIONS (4)
  - Lower gastrointestinal haemorrhage [Fatal]
  - Death [Fatal]
  - Diverticulum intestinal [Fatal]
  - Rectal ulcer [Fatal]
